FAERS Safety Report 24004910 (Version 2)
Quarter: 2024Q3

REPORT INFORMATION
  Report Type: Spontaneous
  Country: IT (occurrence: IT)
  Receive Date: 20240624
  Receipt Date: 20240709
  Transmission Date: 20241017
  Serious: Yes (Other)
  Sender: AUROBINDO
  Company Number: IT-PFIZER INC-PV202400075431

PATIENT
  Age: 75 Year
  Sex: Male

DRUGS (2)
  1. AZITHROMYCIN [Suspect]
     Active Substance: AZITHROMYCIN
     Indication: Osteonecrosis of jaw
     Dosage: 500 MILLIGRAM, ONCE A DAY (500 MG, DAILY (CYCLES OF 3 CONSECUTIVE DAYS EACH))
     Route: 065
     Dates: start: 2007
  2. PIPERACILLIN AND TAZOBACTAM [Suspect]
     Active Substance: PIPERACILLIN SODIUM\TAZOBACTAM SODIUM
     Indication: Osteonecrosis of jaw
     Dosage: UNK
     Route: 065
     Dates: start: 2007

REACTIONS (3)
  - Off label use [Unknown]
  - Drug ineffective for unapproved indication [Unknown]
  - Drug ineffective [Unknown]

NARRATIVE: CASE EVENT DATE: 20070101
